FAERS Safety Report 9511711 (Version 1)
Quarter: 2013Q1

REPORT INFORMATION
  Report Type: Spontaneous
  Country: US (occurrence: None)
  Receive Date: 20130305
  Receipt Date: 20130305
  Transmission Date: 20140127
  Serious: Yes (Other)
  Sender: FDA-Public Use
  Company Number: 163-21880-12111487

PATIENT
  Age: 80 Year
  Sex: Female

DRUGS (11)
  1. HYZAAR (HYZAAR ) (TABLETS) [Concomitant]
  2. LECITHIN (LECITHIN) (CAPSULES) [Concomitant]
  3. REVLIMID (LENALIDOMIDE) (25 MILLIGRAM, CAPSULES) [Suspect]
     Indication: PLASMA CELL MYELOMA
     Dosage: 25 MG, 21 IN 21 D, PO
     Route: 048
     Dates: start: 20120928
  4. BABY ASPIRIN (ACETYLSALICYLIC ACID) (TABLETS) [Concomitant]
  5. CALCIUM (CALCIUM) (TABLETS) [Concomitant]
  6. CAREDILOL (CARVEDILOL) (TABLETS) [Concomitant]
  7. CO-Q-10 (UBIDECARENONE) (CAPSULES) [Concomitant]
  8. DITROPAN XL (OXYBUTYNIN HYDROCHLORIDE) (TABLETS) [Concomitant]
  9. FISH OIL (FISH OIL) (CAPSULES) [Concomitant]
  10. FLUOCINONIDE (FLUOCINONIDE) (UNKNOWN) [Concomitant]
  11. GLUCOSAMINE CHONDROITIN (GLUCOSAMINE W/CHONDROITIN SULFATE) (UNKNOWN) [Concomitant]

REACTIONS (3)
  - Memory impairment [None]
  - Eye pruritus [None]
  - Hypoaesthesia [None]
